FAERS Safety Report 16541785 (Version 5)
Quarter: 2019Q4

REPORT INFORMATION
  Report Type: Report from Study
  Country: US (occurrence: US)
  Receive Date: 20190708
  Receipt Date: 20191206
  Transmission Date: 20200122
  Serious: Yes (Hospitalization)
  Sender: FDA-Public Use
  Company Number: US-ACTELION-A-NJ2018-180352

PATIENT
  Age: 73 Year
  Sex: Female
  Weight: 48.98 kg

DRUGS (4)
  1. REMODULIN [Concomitant]
     Active Substance: TREPROSTINIL
  2. ELIQUIS [Concomitant]
     Active Substance: APIXABAN
  3. OPSUMIT [Suspect]
     Active Substance: MACITENTAN
     Indication: PULMONARY HYPERTENSION
     Dosage: 10 MG, QD
     Route: 048
     Dates: start: 201712
  4. ADCIRCA [Concomitant]
     Active Substance: TADALAFIL

REACTIONS (18)
  - Vision blurred [Unknown]
  - Dyspnoea [Unknown]
  - Infusion site haemorrhage [Unknown]
  - Atrial fibrillation [Not Recovered/Not Resolved]
  - Infection [Recovered/Resolved]
  - Migraine [Not Recovered/Not Resolved]
  - Candida infection [Unknown]
  - Nasal congestion [Not Recovered/Not Resolved]
  - Pain in jaw [Not Recovered/Not Resolved]
  - Transfusion [Recovered/Resolved]
  - Skin infection [Unknown]
  - Asthenia [Unknown]
  - Clostridium difficile infection [Unknown]
  - Heart rate irregular [Recovered/Resolved]
  - Fluid retention [Not Recovered/Not Resolved]
  - Peripheral swelling [Not Recovered/Not Resolved]
  - Pain in extremity [Not Recovered/Not Resolved]
  - Dizziness [Not Recovered/Not Resolved]

NARRATIVE: CASE EVENT DATE: 20190811
